FAERS Safety Report 5052765-6 (Version None)
Quarter: 2006Q3

REPORT INFORMATION
  Report Type: 
  Country: None (occurrence: None)
  Receive Date: 20060711
  Receipt Date: 20060629
  Transmission Date: 20061208
  Serious: Yes (Other)
  Sender: FDA-Public Use
  Company Number: B0430086A

PATIENT
  Age: 21 Year
  Sex: Female

DRUGS (1)
  1. AMOXIL [Suspect]
     Dosage: 500 MG / SINGLE DOSE / ORAL
     Route: 048

REACTIONS (4)
  - PRURITUS GENERALISED [None]
  - SKIN TEST POSITIVE [None]
  - SYNCOPE [None]
  - URTICARIA [None]
